FAERS Safety Report 7316470-5 (Version None)
Quarter: 2011Q1

REPORT INFORMATION
  Report Type: 
  Country: None (occurrence: None)
  Receive Date: 20110225
  Receipt Date: 20110204
  Transmission Date: 20110831
  Serious: Yes (Other)
  Sender: FDA-Public Use
  Company Number: BR-BAYER-2011-011288

PATIENT
  Sex: Male
  Weight: 64 kg

DRUGS (7)
  1. MONOCORDIL [Concomitant]
     Indication: VASODILATATION
     Route: 048
  2. PANTOPRAZOLE [Concomitant]
     Indication: HYPERTENSION
     Route: 048
  3. CIPRO [Suspect]
     Dosage: 1000 MG, QD
     Route: 048
     Dates: start: 20101209, end: 20101215
  4. CHEMOTHERAPEUTICS NOS [Concomitant]
     Indication: GASTROINTESTINAL CARCINOMA
  5. ADALAT [Concomitant]
     Indication: HYPERTENSION
     Route: 048
  6. CIPRO [Suspect]
     Indication: URINARY TRACT INFECTION
     Dosage: UNK
     Route: 042
     Dates: start: 20101124, end: 20101208
  7. CHEMOTHERAPEUTICS NOS [Concomitant]
     Indication: HEPATIC NEOPLASM MALIGNANT
     Route: 042

REACTIONS (1)
  - HAEMATOCHEZIA [None]
